FAERS Safety Report 4878787-3 (Version None)
Quarter: 2005Q4

REPORT INFORMATION
  Report Type: 
  Country: None (occurrence: None)
  Receive Date: 20051209
  Receipt Date: 20050722
  Transmission Date: 20060501
  Serious: Yes (Hospitalization, Other)
  Sender: FDA-Public Use
  Company Number: USA-2003-0010601

PATIENT
  Age: 48 Year
  Sex: Male
  Weight: 108.8 kg

DRUGS (10)
  1. OXYCONTIN [Suspect]
     Indication: PAIN
     Dosage: 40 MG, TID
  2. OXYCODONE HCL [Concomitant]
  3. NEURONTIN [Concomitant]
  4. PAXIL [Concomitant]
  5. LIPITOR [Concomitant]
  6. ELAVIL [Concomitant]
  7. ZOLOFT [Concomitant]
  8. ZANAFLEX [Concomitant]
  9. ROBAXIN [Concomitant]
  10. ACETYLSALICYLIC ACID SRT [Concomitant]

REACTIONS (48)
  - ABDOMINAL DISCOMFORT [None]
  - AGITATION [None]
  - ANGER [None]
  - ANXIETY [None]
  - ARTHRALGIA [None]
  - ASTHENIA [None]
  - BACK PAIN [None]
  - BALANCE DISORDER [None]
  - BEDRIDDEN [None]
  - BURNING SENSATION [None]
  - CHEST PAIN [None]
  - CONSTIPATION [None]
  - DEPRESSION [None]
  - DISTURBANCE IN ATTENTION [None]
  - DRUG DEPENDENCE [None]
  - DRUG INEFFECTIVE [None]
  - DRUG TOLERANCE [None]
  - DRUG WITHDRAWAL SYNDROME [None]
  - DYSPEPSIA [None]
  - DYSPNOEA [None]
  - EMOTIONAL DISTRESS [None]
  - FALL [None]
  - FATIGUE [None]
  - GRIP STRENGTH DECREASED [None]
  - HANGOVER [None]
  - HEADACHE [None]
  - HYPOAESTHESIA [None]
  - INADEQUATE ANALGESIA [None]
  - INJURY [None]
  - INSOMNIA [None]
  - MEDICATION ERROR [None]
  - MOOD ALTERED [None]
  - MUSCLE SPASMS [None]
  - NASOPHARYNGITIS [None]
  - NAUSEA [None]
  - NECK PAIN [None]
  - NOCTURIA [None]
  - OROPHARYNGEAL SWELLING [None]
  - OVERDOSE [None]
  - PAIN [None]
  - PARAESTHESIA [None]
  - RECTAL HAEMORRHAGE [None]
  - SEDATION [None]
  - SENSATION OF FOREIGN BODY [None]
  - SLEEP DISORDER [None]
  - SOMNOLENCE [None]
  - VERBAL ABUSE [None]
  - VOMITING [None]
